FAERS Safety Report 9403612 (Version 1)
Quarter: 2013Q3

REPORT INFORMATION
  Report Type: Spontaneous
  Country: US (occurrence: US)
  Receive Date: 20130717
  Receipt Date: 20130717
  Transmission Date: 20140515
  Serious: No
  Sender: FDA-Public Use
  Company Number: US-009507513-1306USA008659

PATIENT
  Sex: Male
  Weight: 95.24 kg

DRUGS (8)
  1. PEGINTRON [Suspect]
     Dosage: 120 MICROGRAM, QW; REDIPEN
     Route: 058
  2. RIBAPAK [Suspect]
     Dosage: 800/DAY
  3. TELAPREVIR [Suspect]
  4. TRUVADA [Concomitant]
  5. NORVIR [Concomitant]
  6. OMEGA-3 MARINE TRIGLYCERIDES [Concomitant]
  7. MILK THISTLE [Concomitant]
  8. BENADRYL [Concomitant]

REACTIONS (1)
  - Pruritus [Unknown]
